FAERS Safety Report 9646470 (Version 3)
Quarter: 2014Q1

REPORT INFORMATION
  Report Type: Spontaneous
  Country: FR (occurrence: FR)
  Receive Date: 20131025
  Receipt Date: 20140117
  Transmission Date: 20141002
  Serious: Yes (Hospitalization)
  Sender: FDA-Public Use
  Company Number: FR-ABBVIE-13P-056-1059046-00

PATIENT
  Age: 54 Year
  Sex: Male
  Weight: 78 kg

DRUGS (10)
  1. HUMIRA [Suspect]
     Indication: ANKYLOSING SPONDYLITIS
     Route: 058
     Dates: start: 201012, end: 201301
  2. HYDROCORTISONE [Concomitant]
     Indication: ADRENAL INSUFFICIENCY
  3. RABEPRAZOLE [Concomitant]
     Indication: PRODUCT USED FOR UNKNOWN INDICATION
  4. TARDYFERON [Concomitant]
     Indication: PRODUCT USED FOR UNKNOWN INDICATION
  5. XYZALL [Concomitant]
     Indication: PRODUCT USED FOR UNKNOWN INDICATION
  6. CALTRATE VITAMINE D3 [Concomitant]
     Indication: PRODUCT USED FOR UNKNOWN INDICATION
  7. LEVOTHYROXINE SODIUM [Concomitant]
     Indication: PRODUCT USED FOR UNKNOWN INDICATION
  8. DIFFU-K [Concomitant]
     Indication: PRODUCT USED FOR UNKNOWN INDICATION
  9. FLUDROCORTISONE [Concomitant]
     Indication: ADRENAL INSUFFICIENCY
  10. DHEA [Concomitant]
     Indication: PRODUCT USED FOR UNKNOWN INDICATION

REACTIONS (15)
  - Vascular purpura [Recovered/Resolved]
  - Hypersensitivity vasculitis [Recovered/Resolved]
  - Renal vasculitis [Recovered/Resolved]
  - Proteinuria [Recovered/Resolved]
  - Haematuria [Recovered/Resolved]
  - IgA nephropathy [Recovering/Resolving]
  - Vasculitis necrotising [Recovering/Resolving]
  - Gastrointestinal disorder [Recovering/Resolving]
  - Arthropathy [Recovering/Resolving]
  - Arthralgia [Unknown]
  - Diarrhoea [Unknown]
  - Abdominal pain [Unknown]
  - Henoch-Schonlein purpura [Recovering/Resolving]
  - Purpura [Recovering/Resolving]
  - Dyspepsia [Recovering/Resolving]
